FAERS Safety Report 4406320-9 (Version None)
Quarter: 2004Q3

REPORT INFORMATION
  Report Type: 
  Country: None (occurrence: None)
  Receive Date: 20040723
  Receipt Date: 20030619
  Transmission Date: 20050211
  Serious: No
  Sender: FDA-Public Use
  Company Number: US-GLAXOSMITHKLINE-A0413147A

PATIENT
  Age: 61 Year
  Sex: Male

DRUGS (3)
  1. AVANDIA [Suspect]
     Dosage: 4MG PER DAY
     Route: 048
     Dates: start: 20030617
  2. GLUCOPHAGE [Concomitant]
  3. UNSPECIFIED PAIN MEDICATION [Concomitant]
     Indication: HERNIA REPAIR

REACTIONS (1)
  - DIARRHOEA [None]
